FAERS Safety Report 6510708-X (Version None)
Quarter: 2009Q4

REPORT INFORMATION
  Report Type: 
  Country: None (occurrence: None)
  Receive Date: 20091222
  Receipt Date: 20091021
  Transmission Date: 20100525
  Serious: No
  Sender: FDA-Public Use
  Company Number: US-ASTRAZENECA-2009SE21660

PATIENT
  Age: 55 Year
  Sex: Female
  Weight: 57.2 kg

DRUGS (7)
  1. CRESTOR [Suspect]
     Route: 048
     Dates: start: 20090101
  2. CRESTOR [Suspect]
     Route: 048
     Dates: start: 20090101
  3. M.V.I. [Concomitant]
     Dosage: DAILY
  4. CALCIUM [Concomitant]
  5. VITAMIN D [Concomitant]
  6. FISH OIL [Concomitant]
  7. ASPIRIN [Concomitant]

REACTIONS (5)
  - ASTHENIA [None]
  - BLOOD UREA INCREASED [None]
  - MYALGIA [None]
  - NASOPHARYNGITIS [None]
  - STERNAL INJURY [None]
